FAERS Safety Report 19501323 (Version 1)
Quarter: 2021Q3

REPORT INFORMATION
  Report Type: Spontaneous
  Country: US (occurrence: US)
  Receive Date: 20210707
  Receipt Date: 20210707
  Transmission Date: 20211014
  Serious: Yes (Other)
  Sender: FDA-Public Use
  Company Number: None

PATIENT
  Age: 47 Year
  Sex: Male
  Weight: 130.5 kg

DRUGS (14)
  1. GENERIC NORVASC [Concomitant]
  2. MULTIPLE VITAMIN [Concomitant]
     Active Substance: VITAMINS
  3. VIT D [Concomitant]
     Active Substance: VITAMIN D NOS
  4. GENERIC AVALIDE [Concomitant]
  5. WATER PILL [Concomitant]
     Active Substance: UNSPECIFIED INGREDIENT
  6. FISH OIL [Concomitant]
     Active Substance: FISH OIL
  7. BUPROPION HCL TAB 300 MG XL [Suspect]
     Active Substance: BUPROPION HYDROCHLORIDE
     Indication: BIPOLAR I DISORDER
     Dosage: ?          QUANTITY:1 TABLET(S);?
     Route: 048
  8. BUPROPION HCL TAB 300 MG XL [Suspect]
     Active Substance: BUPROPION HYDROCHLORIDE
     Indication: SEASONAL AFFECTIVE DISORDER
     Dosage: ?          QUANTITY:1 TABLET(S);?
     Route: 048
  9. GENERIC CYMBALTA [Concomitant]
     Active Substance: DULOXETINE HYDROCHLORIDE
  10. LATUDA [Concomitant]
     Active Substance: LURASIDONE HYDROCHLORIDE
  11. WELLBUTRIN XL [Concomitant]
     Active Substance: BUPROPION HYDROCHLORIDE
  12. DULOXETINE CAP 30 MG, GENERIC FOR CYMBALTA [Suspect]
     Active Substance: DULOXETINE HYDROCHLORIDE
     Indication: BIPOLAR I DISORDER
     Dosage: ?          QUANTITY:2 CAPSULE(S);?
     Route: 048
  13. GENERIC LAMICTAL [Concomitant]
     Active Substance: LAMOTRIGINE
  14. BAYER ASPIRIN [Concomitant]
     Active Substance: ASPIRIN

REACTIONS (5)
  - Suicidal ideation [None]
  - Feeling of despair [None]
  - Depression [None]
  - Malaise [None]
  - Fatigue [None]

NARRATIVE: CASE EVENT DATE: 20210524
